FAERS Safety Report 14663829 (Version 1)
Quarter: 2018Q1

REPORT INFORMATION
  Report Type: Spontaneous
  Country: SG (occurrence: SG)
  Receive Date: 20180321
  Receipt Date: 20180321
  Transmission Date: 20180509
  Serious: Yes (Hospitalization, Other)
  Sender: FDA-Public Use
  Company Number: SG-BAYER-2018-047249

PATIENT
  Age: 32 Year
  Sex: Female

DRUGS (3)
  1. CIPROFLOXACIN. [Suspect]
     Active Substance: CIPROFLOXACIN
     Dosage: UNK
  2. HYOSCINE [Suspect]
     Active Substance: SCOPOLAMINE
     Dosage: UNK
  3. LOPERAMIDE [Suspect]
     Active Substance: LOPERAMIDE
     Dosage: UNK

REACTIONS (3)
  - Laryngeal oedema [Unknown]
  - Dysphonia [Unknown]
  - Sensation of foreign body [Unknown]

NARRATIVE: CASE EVENT DATE: 20180112
